FAERS Safety Report 4542428-5 (Version None)
Quarter: 2004Q4

REPORT INFORMATION
  Report Type: 
  Country: None (occurrence: None)
  Receive Date: 20041230
  Receipt Date: 20041222
  Transmission Date: 20050328
  Serious: Yes (Other)
  Sender: FDA-Public Use
  Company Number: US-ABBOTT-04P-163-0284497-00

PATIENT
  Sex: Female

DRUGS (4)
  1. DEPAKOTE [Suspect]
     Indication: DRUG USE FOR UNKNOWN INDICATION
     Dates: end: 20041201
  2. DEPAKOTE [Suspect]
     Dates: start: 20041201
  3. CLOZAPINE [Suspect]
     Indication: BIPOLAR DISORDER
     Route: 048
     Dates: start: 20041101
  4. CLONAZEPAM [Concomitant]
     Indication: DRUG USE FOR UNKNOWN INDICATION
     Dates: end: 20041201

REACTIONS (7)
  - ANAEMIA MACROCYTIC [None]
  - NASAL CONGESTION [None]
  - PAIN [None]
  - PHARYNGITIS [None]
  - PRODUCTIVE COUGH [None]
  - PYREXIA [None]
  - SEDATION [None]
